FAERS Safety Report 17239297 (Version 1)
Quarter: 2020Q1

REPORT INFORMATION
  Report Type: Spontaneous
  Country: TH (occurrence: TH)
  Receive Date: 20200106
  Receipt Date: 20200106
  Transmission Date: 20200409
  Serious: Yes (Other)
  Sender: FDA-Public Use
  Company Number: TH-NOVOPROD-704932

PATIENT
  Age: 21 Year
  Sex: Female

DRUGS (1)
  1. SAXENDA [Suspect]
     Active Substance: LIRAGLUTIDE
     Indication: PRODUCT USED FOR UNKNOWN INDICATION
     Dosage: 0.6 MG
     Route: 065
     Dates: start: 20191223, end: 20191224

REACTIONS (3)
  - Palpitations [Unknown]
  - Insomnia [Unknown]
  - Syncope [Unknown]

NARRATIVE: CASE EVENT DATE: 20191224
